FAERS Safety Report 9221128 (Version 1)
Quarter: 2013Q2

REPORT INFORMATION
  Report Type: Spontaneous
  Country: US (occurrence: US)
  Receive Date: 20130409
  Receipt Date: 20130409
  Transmission Date: 20140414
  Serious: No
  Sender: FDA-Public Use
  Company Number: US-009507513-1304USA000650

PATIENT
  Age: 18 Year
  Sex: Female
  Weight: 51.25 kg

DRUGS (1)
  1. IMPLANON [Suspect]
     Indication: CONTRACEPTION
     Dosage: 1 DF, 3 YEAR IMPLANT, LEFT ARM
     Route: 059
     Dates: start: 20121026

REACTIONS (6)
  - Hypoaesthesia [Unknown]
  - Contusion [Unknown]
  - Injury associated with device [Unknown]
  - Device breakage [Unknown]
  - Device kink [Unknown]
  - Device expulsion [Unknown]
